FAERS Safety Report 6409456-6 (Version None)
Quarter: 2009Q4

REPORT INFORMATION
  Report Type: 
  Country: None (occurrence: None)
  Receive Date: 20091019
  Receipt Date: 20091006
  Transmission Date: 20100525
  Serious: Yes (Hospitalization)
  Sender: FDA-Public Use
  Company Number: FABR-1001025

PATIENT
  Age: 6 Year
  Sex: Male
  Weight: 18.7 kg

DRUGS (1)
  1. FABRAZYME [Suspect]
     Indication: FABRY'S DISEASE
     Dosage: 20 MG, Q2W, INTRAVENOUS
     Route: 042
     Dates: start: 20090701

REACTIONS (1)
  - H1N1 INFLUENZA [None]
